FAERS Safety Report 6511173-9 (Version None)
Quarter: 2009Q4

REPORT INFORMATION
  Report Type: 
  Country: None (occurrence: None)
  Receive Date: 20091222
  Receipt Date: 20091214
  Transmission Date: 20100525
  Serious: Yes (Hospitalization)
  Sender: FDA-Public Use
  Company Number: US-TEVA-218034USA

PATIENT
  Sex: Female

DRUGS (10)
  1. FLUOROURACIL [Suspect]
     Indication: COLORECTAL CANCER
     Route: 042
     Dates: start: 20090223
  2. BEVACIZUMAB [Suspect]
     Indication: COLORECTAL CANCER
     Dosage: 1 IN 2 WEEKS
     Route: 042
     Dates: start: 20090223
  3. FOLINIC ACID [Suspect]
     Indication: COLORECTAL CANCER
     Route: 042
     Dates: start: 20090223
  4. IRINOTECAN HCL [Suspect]
     Route: 042
     Dates: start: 20090223
  5. METOPROLOL TARTRATE [Concomitant]
     Route: 048
  6. HYDROCHLOROTHIAZIDE [Concomitant]
     Route: 048
  7. AMLODIPINE BESYLATE [Concomitant]
     Route: 048
     Dates: start: 20080417
  8. LOPERAMIDE [Concomitant]
     Route: 048
     Dates: start: 20090223
  9. PROCHLORPERAZINE MALEATE [Concomitant]
     Dosage: 3 IN, AS NECESSARY
     Route: 048
     Dates: start: 20090223
  10. ONDANSETRON HYDROCHLORIDE [Concomitant]
     Route: 042
     Dates: start: 20071109

REACTIONS (2)
  - FALL [None]
  - HIP FRACTURE [None]
